FAERS Safety Report 9189845 (Version 1)
Quarter: 2013Q1

REPORT INFORMATION
  Report Type: Spontaneous
  Country: AR (occurrence: AR)
  Receive Date: 20130326
  Receipt Date: 20130326
  Transmission Date: 20140127
  Serious: Yes (Other)
  Sender: FDA-Public Use
  Company Number: AR-MILLENNIUM PHARMACEUTICALS, INC.-2013-02167

PATIENT
  Sex: 0

DRUGS (2)
  1. VELCADE [Suspect]
     Indication: PRODUCT USED FOR UNKNOWN INDICATION
     Dosage: 1.5 MG/M2, CYCLIC
     Route: 065
  2. PREGABALIN [Concomitant]
     Indication: BONE PAIN

REACTIONS (3)
  - Trigeminal neuralgia [Unknown]
  - Convulsion [Unknown]
  - Leukoencephalopathy [Unknown]
